FAERS Safety Report 4743866-8 (Version None)
Quarter: 2005Q3

REPORT INFORMATION
  Report Type: 
  Country: None (occurrence: None)
  Receive Date: 20050812
  Receipt Date: 20050315
  Transmission Date: 20060218
  Serious: Yes (Hospitalization)
  Sender: FDA-Public Use
  Company Number: US-MERCK-0503USA02467

PATIENT
  Age: 68 Year
  Sex: Male
  Weight: 100 kg

DRUGS (5)
  1. VIOXX [Suspect]
     Route: 048
     Dates: start: 20030401, end: 20030508
  2. GLYNASE [Concomitant]
     Route: 048
  3. NEXIUM [Concomitant]
     Route: 048
  4. PROCARDIA [Concomitant]
     Route: 065
  5. DYAZIDE [Concomitant]
     Route: 065

REACTIONS (10)
  - ADVERSE EVENT [None]
  - ANAEMIA [None]
  - DIABETES MELLITUS NON-INSULIN-DEPENDENT [None]
  - HYPOCOAGULABLE STATE [None]
  - METABOLIC ACIDOSIS [None]
  - MITRAL VALVE INCOMPETENCE [None]
  - PNEUMONIA [None]
  - PULMONARY EMBOLISM [None]
  - SINUS TACHYCARDIA [None]
  - THERAPEUTIC RESPONSE DECREASED [None]
